FAERS Safety Report 7834460-0 (Version None)
Quarter: 2011Q4

REPORT INFORMATION
  Report Type: 
  Country: None (occurrence: None)
  Receive Date: 20111024
  Receipt Date: 20111013
  Transmission Date: 20120403
  Serious: Yes (Other)
  Sender: FDA-Public Use
  Company Number: US-ASTRAZENECA-2010SE44979

PATIENT
  Age: 22 Year
  Sex: Male
  Weight: 106.6 kg

DRUGS (7)
  1. SEROQUEL [Suspect]
     Route: 048
     Dates: start: 20100101
  2. SEROQUEL [Suspect]
     Route: 048
  3. PROPRANOLOL [Concomitant]
  4. SEROQUEL [Suspect]
     Indication: BIPOLAR DISORDER
     Route: 048
     Dates: start: 20060101, end: 20100801
  5. LITHIUM CITRATE [Concomitant]
  6. LITHIUM CITRATE [Concomitant]
  7. XANAX [Concomitant]

REACTIONS (11)
  - ADVERSE DRUG REACTION [None]
  - AGITATION [None]
  - HOMICIDAL IDEATION [None]
  - AGGRESSION [None]
  - ANGER [None]
  - RESTLESS LEGS SYNDROME [None]
  - DEPRESSION [None]
  - DRUG DOSE OMISSION [None]
  - SUICIDAL IDEATION [None]
  - ABNORMAL BEHAVIOUR [None]
  - MALAISE [None]
